FAERS Safety Report 4686364-2 (Version None)
Quarter: 2005Q2

REPORT INFORMATION
  Report Type: 
  Country: None (occurrence: None)
  Receive Date: 20050609
  Receipt Date: 20050323
  Transmission Date: 20051028
  Serious: Yes (Death, Hospitalization, Other)
  Sender: FDA-Public Use
  Company Number: PHEH2005US03548

PATIENT
  Sex: Male

DRUGS (5)
  1. GLEEVEC [Suspect]
     Indication: CHRONIC MYELOID LEUKAEMIA
     Dosage: 400 MG, QD
     Route: 048
     Dates: start: 20040629
  2. COREG [Concomitant]
     Indication: CORONARY ARTERY DISEASE
     Dosage: 6.25 MG, BID
     Route: 048
     Dates: start: 20040701
  3. PLAVIX [Concomitant]
     Indication: STENT PLACEMENT
     Dosage: 75 MG, QD
     Route: 048
     Dates: start: 20040701
  4. LASIX [Concomitant]
     Indication: CARDIAC FAILURE CONGESTIVE
     Dosage: 40 MG, QD
     Route: 048
     Dates: start: 20040701
  5. ACETYLSALICYLIC ACID [Concomitant]
     Indication: CORONARY ARTERY DISEASE
     Dosage: 81 MG, QD
     Route: 048
     Dates: start: 20040701

REACTIONS (6)
  - AGGRESSION [None]
  - ATRIAL FIBRILLATION [None]
  - CARDIAC ARREST [None]
  - CORONARY ARTERY DISEASE [None]
  - TROPONIN T INCREASED [None]
  - UNRESPONSIVE TO VERBAL STIMULI [None]
